FAERS Safety Report 20459525 (Version 3)
Quarter: 2025Q2

REPORT INFORMATION
  Report Type: Spontaneous
  Country: CZ (occurrence: CZ)
  Receive Date: 20220211
  Receipt Date: 20250527
  Transmission Date: 20250716
  Serious: Yes (Other)
  Sender: ACCORD
  Company Number: None

PATIENT
  Age: 49 Year
  Sex: Female

DRUGS (10)
  1. LETROZOLE [Suspect]
     Active Substance: LETROZOLE
     Indication: Hormone receptor positive HER2 negative breast cancer
     Dosage: 2.5 MILLIGRAM, QD
     Route: 065
     Dates: start: 201907
  2. RIBOCICLIB [Suspect]
     Active Substance: RIBOCICLIB
     Indication: Hormone receptor positive HER2 negative breast cancer
     Dosage: 600 MILLIGRAM, QD, 600 MILLIGRAM DAILY; 600 MG DAILY IN THE REGIMEN 3/1
     Route: 065
     Dates: start: 201907
  3. GOSERELIN ACETATE [Suspect]
     Active Substance: GOSERELIN ACETATE
     Indication: Breast cancer stage IV
     Dosage: 3.6 MG, ONCE EVERY 28 DAYS WITH AN INTERVAL OF 1-WEEK (3.6 MG)
     Dates: start: 201907, end: 202202
  4. DICLOFENAC [Suspect]
     Active Substance: DICLOFENAC
     Indication: Spinal pain
     Route: 065
     Dates: start: 2019
  5. METAMIZOL SODIUM [Suspect]
     Active Substance: METAMIZOL SODIUM
     Indication: Spinal pain
     Dates: start: 2019
  6. RIBOCICLIB [Suspect]
     Active Substance: RIBOCICLIB
     Indication: Hormone receptor positive HER2 negative breast cancer
     Dosage: UNK, REGIME 3/1
     Route: 065
     Dates: start: 201907
  7. RIBOCICLIB [Suspect]
     Active Substance: RIBOCICLIB
     Indication: Hormone receptor positive HER2 negative breast cancer
     Dosage: 600 MILLIGRAM, QD, 600 MG DAILY IN THE REGIMEN 3/1 (COMBINED THERAPY WITH?LETROZOLE)
     Route: 065
     Dates: start: 201907
  8. LETROZOLE [Suspect]
     Active Substance: LETROZOLE
     Indication: Hormone receptor positive HER2 negative breast cancer
     Dosage: 2.5 MILLIGRAM, QD, 2.5 MG DAILY (COMBINED THERAPY WITH RIBOCICLIB)
     Route: 065
     Dates: start: 201907
  9. RIBOCICLIB [Suspect]
     Active Substance: RIBOCICLIB
     Indication: Hormone receptor positive HER2 negative breast cancer
     Dosage: 600 MG ONCE DAILY (FOR 3 WEEKS WITH A SUBSEQUENT ONE-WEEK BREAK)
     Route: 065
     Dates: start: 201908
  10. LETROZOLE [Suspect]
     Active Substance: LETROZOLE
     Indication: Hormone therapy
     Dosage: 2.5 MG, QD CONTINUOUSLY, WITHOUT A BREAK
     Route: 065
     Dates: start: 201908

REACTIONS (3)
  - Neutropenia [Recovered/Resolved]
  - Therapy partial responder [Unknown]
  - Leukopenia [Recovered/Resolved]

NARRATIVE: CASE EVENT DATE: 20190101
